FAERS Safety Report 4567908-8 (Version None)
Quarter: 2005Q1

REPORT INFORMATION
  Report Type: 
  Country: None (occurrence: None)
  Receive Date: 20050202
  Receipt Date: 20050125
  Transmission Date: 20050727
  Serious: Yes (Other)
  Sender: FDA-Public Use
  Company Number: PHNU2005DE00667

PATIENT
  Sex: Male

DRUGS (3)
  1. CLOZARIL [Suspect]
     Dosage: UNKNOWN
     Route: 048
  2. ATOSIL [Concomitant]
     Dosage: UNKNOWN
  3. LORAZEPAM [Concomitant]
     Dosage: UNKNOWN

REACTIONS (2)
  - BRAIN OEDEMA [None]
  - HYPONATRAEMIA [None]
